FAERS Safety Report 8768109 (Version 2)
Quarter: 2012Q4

REPORT INFORMATION
  Report Type: 
  Country: CO (occurrence: CO)
  Receive Date: 20120830
  Receipt Date: 20120921
  Transmission Date: 20130627
  Serious: Yes (Hospitalization)
  Sender: FDA-Public Use
  Company Number: CO-ELI_LILLY_AND_COMPANY-CO201208007899

PATIENT
  Age: 74 Year
  Sex: Female

DRUGS (5)
  1. FORTEO [Suspect]
     Indication: OSTEOPOROSIS
     Dosage: 20 ug, qd
     Route: 058
     Dates: start: 201202
  2. SERETIDE [Concomitant]
  3. LOSARTAN [Concomitant]
  4. SALBUTAMOL [Concomitant]
  5. TRAZODONE [Concomitant]

REACTIONS (1)
  - Fall [Not Recovered/Not Resolved]
